FAERS Safety Report 8473780-6 (Version None)
Quarter: 2012Q2

REPORT INFORMATION
  Report Type: 
  Country: None (occurrence: None)
  Receive Date: 20120628
  Receipt Date: 20120521
  Transmission Date: 20120825
  Serious: Yes (Other)
  Sender: FDA-Public Use
  Company Number: US-MYLANLABS-2011S1023146

PATIENT
  Age: 18 Year
  Sex: Female

DRUGS (4)
  1. TOPIRAMATE [Concomitant]
     Route: 048
  2. CLOZAPINE [Suspect]
     Route: 048
     Dates: start: 20111215, end: 20120510
  3. CLOZAPINE [Suspect]
     Route: 048
     Dates: start: 20110428, end: 20111214
  4. SEROQUEL [Concomitant]
     Route: 048

REACTIONS (1)
  - GRANULOCYTOPENIA [None]
